FAERS Safety Report 8162230-5 (Version None)
Quarter: 2012Q1

REPORT INFORMATION
  Report Type: 
  Country: None (occurrence: None)
  Receive Date: 20120224
  Receipt Date: 20111109
  Transmission Date: 20120608
  Serious: No
  Sender: FDA-Public Use
  Company Number: US-BRISTOL-MYERS SQUIBB COMPANY-16159246

PATIENT
  Age: 61 Year
  Sex: Male

DRUGS (3)
  1. LANTUS [Concomitant]
     Indication: TYPE 2 DIABETES MELLITUS
     Dosage: PARENTERAL INJ/SOLUN/100IU/ML
     Route: 058
     Dates: start: 20110914
  2. METFORMIN HCL [Suspect]
     Route: 065
  3. AMARYL [Suspect]
     Route: 065

REACTIONS (2)
  - BLOOD GLUCOSE INCREASED [None]
  - DRUG INEFFECTIVE [None]
